FAERS Safety Report 5065335-0 (Version None)
Quarter: 2006Q3

REPORT INFORMATION
  Report Type: 
  Country: None (occurrence: None)
  Receive Date: 20060731
  Receipt Date: 20060720
  Transmission Date: 20061208
  Serious: Yes (Other)
  Sender: FDA-Public Use
  Company Number: US-JNJFOC-20060704431

PATIENT
  Sex: Male
  Weight: 97.52 kg

DRUGS (10)
  1. REMICADE [Suspect]
     Indication: RHEUMATOID ARTHRITIS
     Route: 042
  2. METHOTREXATE [Concomitant]
  3. AVALIDE [Concomitant]
     Dosage: 150/12.5 DAILY
  4. ASPIRIN [Concomitant]
  5. MULTI-VITAMIN [Concomitant]
  6. PROSTATA [Concomitant]
  7. GARLIC [Concomitant]
  8. ZINC [Concomitant]
  9. VITAMIN E [Concomitant]
  10. ASCORBIC ACID [Concomitant]

REACTIONS (1)
  - BASAL CELL CARCINOMA [None]
